FAERS Safety Report 8346627-6 (Version None)
Quarter: 2012Q2

REPORT INFORMATION
  Report Type: 
  Country: None (occurrence: None)
  Receive Date: 20120509
  Receipt Date: 20120504
  Transmission Date: 20120825
  Serious: Yes (Other)
  Sender: FDA-Public Use
  Company Number: PHHY2012BR038627

PATIENT
  Sex: Male
  Weight: 94 kg

DRUGS (7)
  1. FORMOTEROL FUMARATE [Suspect]
     Indication: LUNG DISORDER
     Dosage: AT A DOSE OF 2 INHALATION DAILY
     Dates: start: 20120323
  2. BISOPROLOL FUMARATE [Concomitant]
     Dosage: 10 MG, QD
  3. METFORMIN HCL [Concomitant]
     Dosage: 850 MG, QD
  4. FUROSEMIDE [Concomitant]
     Dosage: 40 MG, QD
  5. ENALAPRIL MALEATE [Concomitant]
     Dosage: UNK UKN, QD
  6. DIGOXIN [Concomitant]
     Dosage: 0.25 MG, QD
  7. ALDACTONE [Concomitant]
     Dosage: 25 MG, QD

REACTIONS (7)
  - APHONIA [None]
  - THROAT IRRITATION [None]
  - GAIT DISTURBANCE [None]
  - APTYALISM [None]
  - APPARENT DEATH [None]
  - DYSPNOEA [None]
  - NERVOUSNESS [None]
